FAERS Safety Report 7054327-8 (Version None)
Quarter: 2010Q4

REPORT INFORMATION
  Report Type: 
  Country: None (occurrence: None)
  Receive Date: 20101015
  Receipt Date: 20101004
  Transmission Date: 20110411
  Serious: Yes (Other)
  Sender: FDA-Public Use
  Company Number: AUR-APL-2010-02457

PATIENT
  Age: 34 Year
  Sex: Female

DRUGS (3)
  1. SIMVASTATIN [Suspect]
  2. MULTAQ [Suspect]
  3. AMIODARONE [Concomitant]

REACTIONS (1)
  - MYOSITIS [None]
